FAERS Safety Report 5778096-4 (Version None)
Quarter: 2008Q2

REPORT INFORMATION
  Report Type: 
  Country: None (occurrence: None)
  Receive Date: 20080619
  Receipt Date: 20080606
  Transmission Date: 20081010
  Serious: Yes (Hospitalization, Other)
  Sender: FDA-Public Use
  Company Number: ES-ELI_LILLY_AND_COMPANY-ES200806002960

PATIENT
  Age: 72 Year
  Sex: Female

DRUGS (8)
  1. FORTEO [Suspect]
     Indication: OSTEOPOROSIS
     Dosage: 20 UG, UNKNOWN
     Route: 058
     Dates: start: 20071101
  2. MICARDIS [Concomitant]
     Dosage: UNK, UNKNOWN
     Route: 065
  3. MONOLITUM [Concomitant]
     Dosage: UNK, UNKNOWN
     Route: 065
  4. CARDIL [Concomitant]
     Dosage: UNK, UNKNOWN
     Route: 065
  5. INNOLET [Concomitant]
     Dosage: UNK, UNKNOWN
     Route: 065
  6. SEGURIL [Concomitant]
     Dosage: 40 MG, UNKNOWN
     Route: 065
  7. SEROXAT [Concomitant]
     Dosage: 20 MG, UNKNOWN
     Route: 065
  8. ACTONEL [Concomitant]
     Dosage: UNK, WEEKLY (1/W)
     Route: 065

REACTIONS (3)
  - CEREBROVASCULAR ACCIDENT [None]
  - FALL [None]
  - LOSS OF CONSCIOUSNESS [None]
